FAERS Safety Report 11196900 (Version 1)
Quarter: 2015Q2

REPORT INFORMATION
  Report Type: Spontaneous
  Country: FR (occurrence: FR)
  Receive Date: 20150617
  Receipt Date: 20150617
  Transmission Date: 20150821
  Serious: Yes (Hospitalization)
  Sender: FDA-Public Use
  Company Number: FR-SA-2015SA081376

PATIENT
  Age: 84 Year
  Sex: Female

DRUGS (21)
  1. LASILIX [Suspect]
     Active Substance: FUROSEMIDE
     Indication: ENDOCARDITIS
     Route: 065
     Dates: start: 20150518, end: 20150524
  2. EUPANTOL [Concomitant]
     Active Substance: PANTOPRAZOLE SODIUM
     Route: 048
  3. LASILIX [Suspect]
     Active Substance: FUROSEMIDE
     Indication: ENTEROCOCCAL INFECTION
     Route: 065
     Dates: start: 201505
  4. LASILIX [Suspect]
     Active Substance: FUROSEMIDE
     Indication: ENDOCARDITIS
     Route: 065
     Dates: start: 201505
  5. IXPRIM [Concomitant]
     Active Substance: ACETAMINOPHEN\TRAMADOL HYDROCHLORIDE
     Route: 048
  6. METEOSPASMYL [Concomitant]
     Active Substance: ALVERINE CITRATE\DIMETHICONE
     Route: 048
  7. MIANSERIN [Concomitant]
     Active Substance: MIANSERIN
     Dosage: STRENGTH: 10 MG
     Route: 048
  8. DIFFU K [Concomitant]
     Active Substance: POTASSIUM CHLORIDE
     Dosage: 5 TIMES A DAY
     Route: 048
  9. TARDYFERON [Concomitant]
     Active Substance: FERROUS SULFATE\FOLIC ACID
     Route: 048
  10. ALDACTONE [Concomitant]
     Active Substance: SPIRONOLACTONE
     Dosage: 25 MG
     Route: 048
  11. BURINEX [Concomitant]
     Active Substance: BUMETANIDE
     Route: 048
  12. LASILIX [Suspect]
     Active Substance: FUROSEMIDE
     Indication: ENTEROCOCCAL INFECTION
     Route: 065
     Dates: start: 20150518, end: 20150524
  13. ATACAND [Concomitant]
     Active Substance: CANDESARTAN CILEXETIL
     Route: 048
  14. STILNOX [Concomitant]
     Active Substance: ZOLPIDEM TARTRATE
     Dosage: STRENGTH: 10 MG
     Route: 048
  15. VOLTAREN [Concomitant]
     Active Substance: DICLOFENAC SODIUM
  16. DAFALGAN [Concomitant]
     Active Substance: ACETAMINOPHEN
     Dosage: STRENGTH: 500 MG
     Route: 048
  17. VERATRAN [Concomitant]
     Active Substance: CLOTIAZEPAM
     Dosage: STRENGTH: 5 MG
     Route: 048
  18. BETAHISTINE [Concomitant]
     Active Substance: BETAHISTINE
     Route: 048
  19. BORIC ACID [Concomitant]
     Active Substance: BORIC ACID
     Route: 047
  20. ATARAX [Suspect]
     Active Substance: HYDROXYZINE\HYDROXYZINE HYDROCHLORIDE
     Route: 048
     Dates: start: 20150519, end: 20150520
  21. SINTROM [Concomitant]
     Active Substance: ACENOCOUMAROL
     Route: 048

REACTIONS (3)
  - Dizziness [Recovered/Resolved]
  - Hypotension [Unknown]
  - Radius fracture [Recovering/Resolving]

NARRATIVE: CASE EVENT DATE: 20150519
